FAERS Safety Report 25429856 (Version 1)
Quarter: 2025Q2

REPORT INFORMATION
  Report Type: Spontaneous
  Country: HU (occurrence: HU)
  Receive Date: 20250612
  Receipt Date: 20250612
  Transmission Date: 20250716
  Serious: Yes (Disabling)
  Sender: AMGEN
  Company Number: HU-ROCHE-10000295947

PATIENT
  Age: 54 Year
  Sex: Female

DRUGS (1)
  1. BEVACIZUMAB [Suspect]
     Active Substance: BEVACIZUMAB
     Indication: Product used for unknown indication
     Route: 065

REACTIONS (6)
  - Alopecia [Unknown]
  - Neuropathy peripheral [Unknown]
  - Hypertension [Unknown]
  - Insomnia [Unknown]
  - Hallucination [Unknown]
  - Constipation [Unknown]
